FAERS Safety Report 4847009-1 (Version None)
Quarter: 2005Q4

REPORT INFORMATION
  Report Type: 
  Country: None (occurrence: None)
  Receive Date: 20051205
  Receipt Date: 20051122
  Transmission Date: 20060501
  Serious: Yes (Other)
  Sender: FDA-Public Use
  Company Number: 2005159307

PATIENT
  Sex: Male
  Weight: 102.5129 kg

DRUGS (3)
  1. VIAGRA [Suspect]
     Indication: ERECTILE DYSFUNCTION
  2. TOPROL (METOPROLOL) [Concomitant]
  3. XANAX [Concomitant]

REACTIONS (4)
  - CARDIAC DISORDER [None]
  - DRUG EFFECT DECREASED [None]
  - PROSTATE CANCER [None]
  - WEIGHT DECREASED [None]
